FAERS Safety Report 7499276-6 (Version None)
Quarter: 2011Q2

REPORT INFORMATION
  Report Type: 
  Country: None (occurrence: None)
  Receive Date: 20110524
  Receipt Date: 20110519
  Transmission Date: 20111010
  Serious: Yes (Other)
  Sender: FDA-Public Use
  Company Number: JP-SANOFI-AVENTIS-200710806JP

PATIENT
  Age: 56 Year
  Sex: Male
  Weight: 50 kg

DRUGS (3)
  1. CHLORPHENIRAMINE MALEATE [Concomitant]
     Indication: RHINITIS ALLERGIC
     Dosage: DOSE AS USED: 1 TABLET
     Route: 048
     Dates: start: 20070302
  2. CLARITIN [Concomitant]
     Indication: RHINITIS ALLERGIC
     Dosage: DOSE AS USED: 1 TABLET/DAY
     Route: 048
     Dates: start: 20070213, end: 20070311
  3. ALLEGRA [Suspect]
     Indication: RHINITIS ALLERGIC
     Dosage: DOSE UNIT: 60 MG
     Route: 048
     Dates: start: 20070312, end: 20070403

REACTIONS (1)
  - ATRIAL FIBRILLATION [None]
